FAERS Safety Report 16327412 (Version 1)
Quarter: 2019Q2

REPORT INFORMATION
  Report Type: Spontaneous
  Country: JP (occurrence: JP)
  Receive Date: 20190517
  Receipt Date: 20190517
  Transmission Date: 20190711
  Serious: Yes (Life-Threatening, Disabling, Other)
  Sender: FDA-Public Use
  Company Number: JP-009507513-1312JPN002163

PATIENT
  Age: 58 Year
  Sex: Male
  Weight: 65 kg

DRUGS (25)
  1. XYLOCAINE [Concomitant]
     Active Substance: LIDOCAINE HYDROCHLORIDE
     Indication: LOCAL ANAESTHESIA
     Dosage: 20 MILLILITER
     Route: 058
     Dates: start: 20131115
  2. CRESTOR [Concomitant]
     Active Substance: ROSUVASTATIN CALCIUM
     Indication: HYPERLIPIDAEMIA
     Dosage: UNK
     Route: 048
  3. NEO-SYNESIN [Concomitant]
     Active Substance: PHENYLEPHRINE HYDROCHLORIDE
     Dosage: NUMBER OF SEPARATE DOSAGES UNKNOWN
     Route: 051
     Dates: start: 20131128, end: 20131128
  4. BRIDION [Suspect]
     Active Substance: SUGAMMADEX
     Indication: NEUROMUSCULAR BLOCKADE REVERSAL
     Dosage: 200 MILLIGRAM, QD
     Route: 042
     Dates: start: 20131115, end: 20131115
  5. ATROPINE. [Concomitant]
     Active Substance: ATROPINE
     Dosage: NUMBER OF SEPARATE DOSAGES UNKNOWN
     Route: 051
     Dates: start: 20131115, end: 20131115
  6. DIPRIVAN [Concomitant]
     Active Substance: PROPOFOL
     Indication: ANAESTHESIA PROCEDURE
     Dosage: CONSTANT INFUSION
     Route: 041
     Dates: start: 20131115, end: 20131115
  7. FENTANYL. [Concomitant]
     Active Substance: FENTANYL
     Dosage: 22.5 MILLILITER
     Route: 041
     Dates: start: 20131115, end: 20131115
  8. BOSMIN [Concomitant]
     Active Substance: EPINEPHRINE
     Dosage: 1 MILLIGRAM, QD
     Route: 065
     Dates: start: 20131115, end: 20131115
  9. ESLAX [Concomitant]
     Active Substance: ROCURONIUM BROMIDE
     Indication: NEUROMUSCULAR BLOCKING THERAPY
     Dosage: 40 MILLIGRAM, BID
     Route: 042
     Dates: start: 20131115, end: 20131115
  10. ESLAX [Concomitant]
     Active Substance: ROCURONIUM BROMIDE
     Dosage: 40 MILLIGRAM, QD
     Route: 042
     Dates: start: 20131128, end: 20131128
  11. ROPION [Concomitant]
     Active Substance: FLURBIPROFEN AXETIL
     Indication: ANALGESIC THERAPY
     Dosage: 50 MILLIGRAM
     Route: 042
     Dates: start: 20131115
  12. FENTANYL. [Concomitant]
     Active Substance: FENTANYL
     Indication: ANALGESIC THERAPY
     Dosage: 5 MILLILITER
     Route: 042
     Dates: start: 20131128
  13. EPHEDRIN [Concomitant]
     Active Substance: EPHEDRINE HYDROCHLORIDE
     Dosage: NUMBER OF SEPARATE DOSAGES UNKNOWN
     Route: 065
     Dates: start: 20131115, end: 20131115
  14. BRIDION [Suspect]
     Active Substance: SUGAMMADEX
     Dosage: 200 MILLIGRAM, QD
     Route: 042
     Dates: start: 20131128, end: 20131128
  15. ULTIVA [Concomitant]
     Active Substance: REMIFENTANIL HYDROCHLORIDE
     Indication: ANALGESIC THERAPY
     Dosage: CONSTANT INFUSION
     Route: 041
     Dates: start: 20131115, end: 20131115
  16. BOSMIN [Concomitant]
     Active Substance: EPINEPHRINE
     Dosage: 500 MICROGRAM, QD
     Route: 065
     Dates: start: 20131115, end: 20131115
  17. BOSMIN [Concomitant]
     Active Substance: EPINEPHRINE
     Route: 065
     Dates: start: 20131128, end: 20131128
  18. EXFORGE [Concomitant]
     Active Substance: AMLODIPINE BESYLATE\VALSARTAN
     Indication: HYPERTENSION
     Dosage: UNK
     Route: 048
  19. NEO-SYNESIN [Concomitant]
     Active Substance: PHENYLEPHRINE HYDROCHLORIDE
     Dosage: NUMBER OF SEPARATE DOSAGES UNKNOWN
     Route: 051
     Dates: start: 20131115, end: 20131115
  20. BOSMIN [Concomitant]
     Active Substance: EPINEPHRINE
     Dosage: 200-300MIRCOGRAM
     Route: 065
     Dates: start: 20131115, end: 20131115
  21. BOSMIN [Concomitant]
     Active Substance: EPINEPHRINE
     Route: 065
     Dates: start: 20131115, end: 20131115
  22. ESLAX [Concomitant]
     Active Substance: ROCURONIUM BROMIDE
     Dosage: UNK
     Route: 042
     Dates: start: 20131115, end: 20131115
  23. SEVOFRANE [Concomitant]
     Active Substance: SEVOFLURANE
     Indication: ANAESTHESIA PROCEDURE
     Dosage: 20.9 MILLILITER
     Route: 055
     Dates: start: 20131128, end: 20131128
  24. AMLODIPINE [Concomitant]
     Active Substance: AMLODIPINE BESYLATE
     Dosage: NUMBER OF SEPARATE DOSAGES UNKNOWN
     Route: 048
     Dates: start: 20131116
  25. ISOSORBIDE DINITRATE. [Concomitant]
     Active Substance: ISOSORBIDE DINITRATE
     Dosage: NUMBER OF SEPARATE DOSAGES UNKNOWN
     Route: 048
     Dates: start: 20131116

REACTIONS (9)
  - Kounis syndrome [Recovered/Resolved]
  - Cardiac arrest [Recovered/Resolved]
  - Mental impairment [Unknown]
  - Prinzmetal angina [Recovered/Resolved]
  - Hypoxic-ischaemic encephalopathy [Unknown]
  - Hypotension [Recovered/Resolved]
  - Acute coronary syndrome [Recovered/Resolved]
  - Ventricular arrhythmia [Recovered/Resolved]
  - Cardiac arrest [Recovered/Resolved]

NARRATIVE: CASE EVENT DATE: 20131115
